FAERS Safety Report 5054814-8 (Version None)
Quarter: 2006Q3

REPORT INFORMATION
  Report Type: 
  Country: None (occurrence: None)
  Receive Date: 20060719
  Receipt Date: 20060512
  Transmission Date: 20061208
  Serious: Yes (Life-Threatening, Hospitalization)
  Sender: FDA-Public Use
  Company Number: 2006UW09455

PATIENT
  Age: 40 Year
  Sex: Female
  Weight: 75 kg

DRUGS (1)
  1. SEROQUEL [Suspect]
     Route: 048
     Dates: start: 20030112, end: 20060426

REACTIONS (1)
  - SUICIDE ATTEMPT [None]
